FAERS Safety Report 9335739 (Version 3)
Quarter: 2013Q2

REPORT INFORMATION
  Report Type: Spontaneous
  Country: US (occurrence: US)
  Receive Date: 20130607
  Receipt Date: 20130626
  Transmission Date: 20140414
  Serious: No
  Sender: FDA-Public Use
  Company Number: US-009507513-1306USA002423

PATIENT
  Sex: Male

DRUGS (1)
  1. NASONEX [Suspect]
     Indication: SINUS CONGESTION
     Dosage: UNK
     Route: 045
     Dates: start: 201206

REACTIONS (5)
  - Dyspnoea [Recovering/Resolving]
  - Drug dependence [Recovering/Resolving]
  - Inappropriate schedule of drug administration [Unknown]
  - Incorrect dose administered by device [Unknown]
  - Product quality issue [Unknown]
